FAERS Safety Report 6609533-0 (Version None)
Quarter: 2010Q1

REPORT INFORMATION
  Report Type: 
  Country: None (occurrence: None)
  Receive Date: 20100212
  Receipt Date: 20091203
  Transmission Date: 20100710
  Serious: No
  Sender: FDA-Public Use
  Company Number: 1000010539

PATIENT
  Age: 35 Year
  Sex: Female

DRUGS (2)
  1. SAVELLA [Suspect]
     Indication: FIBROMYALGIA
     Dosage: 12. MG (12.5 MG, 1 IN 1 D), ORAL
     Route: 048
     Dates: start: 20091130, end: 20091130
  2. SAVELLA [Suspect]
     Indication: FIBROMYALGIA
     Dosage: 25 MG (12.5 MG, 2 IN 1 D), ORAL
     Route: 048
     Dates: start: 20091201, end: 20091202

REACTIONS (2)
  - MIGRAINE [None]
  - MYDRIASIS [None]
